FAERS Safety Report 16796279 (Version 1)
Quarter: 2019Q3

REPORT INFORMATION
  Report Type: Spontaneous
  Country: US (occurrence: US)
  Receive Date: 20190722
  Receipt Date: 20190722
  Transmission Date: 20191005
  Serious: Yes (Other)
  Sender: FDA-Public Use
  Company Number: None

PATIENT
  Age: 47 Year
  Sex: Male
  Weight: 72.57 kg

DRUGS (1)
  1. SERTALINE 50MG [Suspect]
     Active Substance: SERTRALINE HYDROCHLORIDE
     Indication: MAJOR DEPRESSION
     Route: 048
     Dates: start: 20180310, end: 20180510

REACTIONS (2)
  - Gastrointestinal haemorrhage [None]
  - Abdominal discomfort [None]

NARRATIVE: CASE EVENT DATE: 20180605
